FAERS Safety Report 7290628-6 (Version None)
Quarter: 2011Q1

REPORT INFORMATION
  Report Type: 
  Country: None (occurrence: None)
  Receive Date: 20110214
  Receipt Date: 20110204
  Transmission Date: 20110831
  Serious: Yes (Hospitalization, Other)
  Sender: FDA-Public Use
  Company Number: BR-ASTRAZENECA-2011SE06810

PATIENT
  Age: 68 Year
  Sex: Male

DRUGS (14)
  1. SEROQUEL [Suspect]
     Route: 048
  2. NEOZINE [Concomitant]
     Indication: SEDATION
     Route: 048
  3. SEROQUEL [Suspect]
     Indication: OBSESSIVE-COMPULSIVE DISORDER
     Route: 048
     Dates: start: 20070101
  4. CARBAMAZEPINE [Concomitant]
     Route: 048
  5. MONOCORDIL [Concomitant]
     Route: 048
  6. SYMBICORT [Suspect]
     Dosage: 160/4.5 MCG
     Route: 055
     Dates: start: 20080101
  7. SEROQUEL [Suspect]
     Route: 048
  8. CRESTOR [Suspect]
     Indication: HYPERCHOLESTEROLAEMIA
     Route: 048
     Dates: start: 20050101
  9. LOSARTAN POTASSIUM [Concomitant]
     Indication: HYPERTENSION
     Route: 048
  10. SEROQUEL [Suspect]
     Indication: BIPOLAR DISORDER
     Route: 048
     Dates: start: 20070101
  11. MANIVASC [Concomitant]
     Indication: HYPERTENSION
     Route: 048
  12. HALDOL [Concomitant]
     Route: 048
  13. VASTAREL [Concomitant]
     Route: 048
  14. RIVOTRIL [Concomitant]
     Indication: SEDATION
     Route: 048

REACTIONS (10)
  - INSOMNIA [None]
  - DIABETES MELLITUS INADEQUATE CONTROL [None]
  - BIPOLAR DISORDER [None]
  - LUNG INFECTION [None]
  - DIABETES MELLITUS [None]
  - OBSESSIVE-COMPULSIVE DISORDER [None]
  - PULMONARY OEDEMA [None]
  - COLLAPSE OF LUNG [None]
  - COUGH [None]
  - RESTLESSNESS [None]
